FAERS Safety Report 8099610 (Version 2)
Quarter: 2013Q1

REPORT INFORMATION
  Report Type: Spontaneous
  Country: VE (occurrence: VE)
  Receive Date: 20110822
  Receipt Date: 20130208
  Transmission Date: 20140127
  Serious: Yes (Death, Hospitalization, Disabling)
  Sender: FDA-Public Use
  Company Number: PHHY2011VE73166

PATIENT
  Age: 73 Year
  Sex: Female

DRUGS (13)
  1. ACLASTA [Suspect]
     Indication: OSTEOPOROSIS
     Dosage: 5 MG, ANNUAL
     Route: 042
     Dates: start: 201102
  2. NEXIUM [Concomitant]
     Dosage: UNK UKN, UNK
  3. OLMETEC [Concomitant]
     Dosage: UNK UKN, UNK
  4. CONCOR [Concomitant]
     Dosage: UNK UKN, UNK
  5. TRANGOREX [Concomitant]
     Dosage: UNK UKN, UNK
  6. UNASYN [Concomitant]
     Dosage: UNK UKN, UNK
  7. AMBROCOL [Concomitant]
     Dosage: UNK UKN, UNK
  8. MEDROL [Concomitant]
     Dosage: UNK UKN, UNK
  9. LIOTRIX [Concomitant]
     Dosage: UNK UKN, UNK
  10. EFFEXOR [Concomitant]
     Dosage: UNK UKN, UNK
  11. CALCIBON [Concomitant]
     Dosage: UNK UKN, UNK
  12. NORVASC [Concomitant]
     Dosage: UNK UKN, UNK
  13. TRIDIL [Concomitant]
     Dosage: UNK UKN, UNK

REACTIONS (4)
  - Lung disorder [Fatal]
  - Pneumonia [Not Recovered/Not Resolved]
  - Parkinson^s disease [Not Recovered/Not Resolved]
  - General physical health deterioration [Unknown]
